FAERS Safety Report 17872364 (Version 1)
Quarter: 2020Q2

REPORT INFORMATION
  Report Type: Spontaneous
  Country: CN (occurrence: CN)
  Receive Date: 20200608
  Receipt Date: 20200608
  Transmission Date: 20200714
  Serious: Yes (Other)
  Sender: FDA-Public Use
  Company Number: CN-TOPROL ACQUISITION LLC-2020-TOP-000254

PATIENT
  Sex: Female
  Weight: 43 kg

DRUGS (2)
  1. METOPROLOL SUCCINATE. [Suspect]
     Active Substance: METOPROLOL SUCCINATE
     Dosage: 0.5 DF, QD
     Route: 048
     Dates: start: 2019
  2. METOPROLOL SUCCINATE. [Suspect]
     Active Substance: METOPROLOL SUCCINATE
     Indication: HYPERTENSION
     Dosage: 0.5 DF, QD
     Route: 048
     Dates: start: 2019

REACTIONS (8)
  - Wrong technique in product usage process [Unknown]
  - Dry mouth [Not Recovered/Not Resolved]
  - Tinnitus [Not Recovered/Not Resolved]
  - Intentional product misuse [Unknown]
  - Bronchiectasis [Not Recovered/Not Resolved]
  - Purpura [Not Recovered/Not Resolved]
  - Productive cough [Not Recovered/Not Resolved]
  - Amnesia [Not Recovered/Not Resolved]
